FAERS Safety Report 14669970 (Version 1)
Quarter: 2018Q1

REPORT INFORMATION
  Report Type: Spontaneous
  Country: AT (occurrence: AT)
  Receive Date: 20180322
  Receipt Date: 20180322
  Transmission Date: 20180509
  Serious: Yes (Other)
  Sender: FDA-Public Use
  Company Number: AT-TEVA-2018-AT-870121

PATIENT
  Age: 60 Year
  Sex: Male
  Weight: 100 kg

DRUGS (12)
  1. ZOLDEM [Concomitant]
     Active Substance: ZOLPIDEM TARTRATE
  2. OLEOVIT D3 [Concomitant]
     Active Substance: CHOLECALCIFEROL
  3. MEXALEN [Concomitant]
     Active Substance: ACETAMINOPHEN
     Indication: TENSION HEADACHE
  4. SERTRALINE [Suspect]
     Active Substance: SERTRALINE HYDROCHLORIDE
     Route: 065
  5. PANTOPRAZOL [Concomitant]
     Active Substance: PANTOPRAZOLE SODIUM
  6. INDERAL [Concomitant]
     Active Substance: PROPRANOLOL HYDROCHLORIDE
  7. SERTRALINE [Suspect]
     Active Substance: SERTRALINE HYDROCHLORIDE
     Route: 065
  8. ZOLDEM [Concomitant]
     Active Substance: ZOLPIDEM TARTRATE
  9. RAMIPRIL/HCT 5/25 MG [Concomitant]
  10. PRAXITEN [Concomitant]
     Active Substance: OXAZEPAM
  11. PRAXITEN [Concomitant]
     Active Substance: OXAZEPAM
  12. THROMBO ASS [Concomitant]
     Active Substance: ASPIRIN

REACTIONS (1)
  - Pain in jaw [Recovered/Resolved]
